FAERS Safety Report 6741644-1 (Version None)
Quarter: 2010Q2

REPORT INFORMATION
  Report Type: 
  Country: None (occurrence: None)
  Receive Date: 20100524
  Receipt Date: 20100512
  Transmission Date: 20101027
  Serious: Yes (Hospitalization)
  Sender: FDA-Public Use
  Company Number: LEO-2010-00359

PATIENT
  Age: 78 Year
  Sex: Male

DRUGS (4)
  1. INNOHEP [Suspect]
     Indication: DRUG USE FOR UNKNOWN INDICATION
     Dosage: SUBCUTANEOUS
     Route: 058
  2. HEPARIN [Concomitant]
  3. BETA BLOCKERS (BETA BLOCKING AGENTS) [Concomitant]
  4. ANGIOTENSIN-CONVERTING ENZYME INHIBITOR(ACE INHIBITORS) [Concomitant]

REACTIONS (1)
  - HEPARIN-INDUCED THROMBOCYTOPENIA [None]
